FAERS Safety Report 5326511-2 (Version None)
Quarter: 2007Q2

REPORT INFORMATION
  Report Type: 
  Country: None (occurrence: None)
  Receive Date: 20070516
  Receipt Date: 20070509
  Transmission Date: 20071010
  Serious: Yes (Hospitalization)
  Sender: FDA-Public Use
  Company Number: IT-ABBOTT-06P-083-0347368-00

PATIENT
  Sex: Female
  Weight: 55 kg

DRUGS (9)
  1. HUMIRA [Suspect]
     Indication: RHEUMATOID ARTHRITIS
     Route: 058
     Dates: start: 20050601, end: 20061001
  2. HUMIRA [Suspect]
     Route: 058
     Dates: start: 20061019
  3. ALENDRONATE SODIUM [Concomitant]
     Indication: OSTEOPOROSIS
     Dates: start: 20010101
  4. OMEPRAZOLE [Concomitant]
     Indication: GASTRITIS
     Dates: end: 20061015
  5. METHOTREXATE [Concomitant]
     Indication: RHEUMATOID ARTHRITIS
     Dates: start: 20050501
  6. FOLIC ACID [Concomitant]
     Indication: VITAMIN SUPPLEMENTATION
     Dates: start: 20050501
  7. METHYLPREDNISOLONE 16MG TAB [Concomitant]
     Indication: RHEUMATOID ARTHRITIS
     Dates: start: 20050901
  8. COMMERCIAL HUMIRA [Concomitant]
     Indication: RHEUMATOID ARTHRITIS
     Route: 058
     Dates: start: 20040920
  9. LANSOPRAZOLE [Concomitant]
     Indication: GASTRITIS
     Dates: start: 20061016

REACTIONS (5)
  - ALOPECIA [None]
  - ALOPECIA EFFLUVIUM [None]
  - AORTIC ARTERIOSCLEROSIS [None]
  - ECZEMA [None]
  - HYPOCHROMIC ANAEMIA [None]
